FAERS Safety Report 17988942 (Version 3)
Quarter: 2020Q3

REPORT INFORMATION
  Report Type: Spontaneous
  Country: US (occurrence: US)
  Receive Date: 20200707
  Receipt Date: 20200804
  Transmission Date: 20201103
  Serious: No
  Sender: FDA-Public Use
  Company Number: US-SA-2020SA173269

PATIENT

DRUGS (1)
  1. CABLIVI [Suspect]
     Active Substance: CAPLACIZUMAB-YHDP
     Indication: THROMBOTIC MICROANGIOPATHY
     Dosage: 11 MG, QD
     Route: 058
     Dates: start: 20200623

REACTIONS (4)
  - Dyspnoea [Unknown]
  - Infusion site bruising [Unknown]
  - Contusion [Unknown]
  - Headache [Recovering/Resolving]

NARRATIVE: CASE EVENT DATE: 202006
